FAERS Safety Report 13159802 (Version 1)
Quarter: 2017Q1

REPORT INFORMATION
  Report Type: Spontaneous
  Country: IT (occurrence: IT)
  Receive Date: 20170127
  Receipt Date: 20170127
  Transmission Date: 20170428
  Serious: Yes (Other)
  Sender: FDA-Public Use
  Company Number: IT-MYLANLABS-16X-083-1266428-00

PATIENT

DRUGS (7)
  1. EN [Suspect]
     Active Substance: DELORAZEPAM
     Indication: INTENTIONAL SELF-INJURY
     Dosage: TOTAL
     Route: 048
     Dates: start: 20160911, end: 20160911
  2. RISPERDAL [Suspect]
     Active Substance: RISPERIDONE
     Dosage: TOTAL
     Route: 048
     Dates: start: 20080703, end: 20090209
  3. DEPAKIN CHRONO [Suspect]
     Active Substance: VALPROIC ACID
     Dosage: TOTAL
     Route: 048
     Dates: start: 20080703, end: 20090209
  4. DEPAKIN CHRONO [Suspect]
     Active Substance: VALPROIC ACID
     Indication: INTENTIONAL SELF-INJURY
     Dosage: TOTAL
     Route: 048
     Dates: start: 20160911, end: 20160911
  5. DEPAKIN CHRONO [Suspect]
     Active Substance: VALPROIC ACID
     Dosage: TOTAL
     Route: 048
     Dates: start: 20080703, end: 20090209
  6. RISPERDAL [Suspect]
     Active Substance: RISPERIDONE
     Indication: INTENTIONAL SELF-INJURY
     Dosage: TOTAL
     Route: 048
     Dates: start: 20160911, end: 20160911
  7. DEPAKIN CHRONO [Suspect]
     Active Substance: VALPROIC ACID
     Indication: PRODUCT USED FOR UNKNOWN INDICATION
     Dosage: TOTAL
     Route: 048
     Dates: start: 20160910, end: 20160910

REACTIONS (2)
  - Intentional self-injury [Unknown]
  - Intentional overdose [Unknown]

NARRATIVE: CASE EVENT DATE: 20160911
